FAERS Safety Report 4980873-4 (Version None)
Quarter: 2006Q2

REPORT INFORMATION
  Report Type: 
  Country: None (occurrence: None)
  Receive Date: 20060424
  Receipt Date: 20060417
  Transmission Date: 20061013
  Serious: Yes (Hospitalization, Disabling)
  Sender: FDA-Public Use
  Company Number: US-MERCK-0604USA02851

PATIENT
  Age: 53 Year
  Sex: Male
  Weight: 77 kg

DRUGS (5)
  1. VIOXX [Suspect]
     Indication: INFLAMMATION
     Route: 048
     Dates: start: 20010501, end: 20021101
  2. VIAGRA [Concomitant]
     Route: 065
  3. ACIPHEX [Concomitant]
     Route: 065
  4. HYDROCODONE HYDROCHLORIDE [Concomitant]
     Route: 065
  5. CARISOPRODOL [Concomitant]
     Route: 065

REACTIONS (1)
  - MYOCARDIAL INFARCTION [None]
